FAERS Safety Report 8236941-7 (Version None)
Quarter: 2012Q1

REPORT INFORMATION
  Report Type: 
  Country: None (occurrence: None)
  Receive Date: 20120327
  Receipt Date: 20120319
  Transmission Date: 20120608
  Serious: Yes (Disabling)
  Sender: FDA-Public Use
  Company Number: PHHY2010US72118

PATIENT
  Sex: Female
  Weight: 84 kg

DRUGS (7)
  1. TASIGNA [Suspect]
     Indication: SOFT TISSUE NEOPLASM
     Dosage: 400 MG, BID
     Route: 048
     Dates: start: 20091204
  2. TASIGNA [Suspect]
     Dosage: 2 DF, BID
     Route: 048
  3. TASIGNA [Suspect]
     Dosage: 200 MG, BID
     Route: 048
     Dates: start: 20091204
  4. OMEPRAZOLE [Concomitant]
     Indication: GASTROOESOPHAGEAL REFLUX DISEASE
     Dosage: 20 MG DAILY
     Route: 048
  5. FUROSEMIDE [Concomitant]
     Indication: OEDEMA
     Dosage: 40 MG, BID
     Route: 048
     Dates: start: 20091104
  6. LEVOTHYROXINE SODIUM [Concomitant]
     Indication: HYPOTHYROIDISM
     Dosage: 25 MCG DAILY
     Route: 048
  7. METOPROLOL SUCCINATE [Concomitant]
     Indication: HYPERTENSION
     Dosage: 500 MG, BID
     Route: 048

REACTIONS (11)
  - WEIGHT INCREASED [None]
  - THYROID DISORDER [None]
  - FLUID RETENTION [None]
  - OEDEMA [None]
  - ABDOMINAL PAIN UPPER [None]
  - HYPOTHYROIDISM [None]
  - FATIGUE [None]
  - DYSPHAGIA [None]
  - DYSPNOEA [None]
  - OEDEMA PERIPHERAL [None]
  - ASTHENIA [None]
